FAERS Safety Report 8059910-9 (Version None)
Quarter: 2012Q1

REPORT INFORMATION
  Report Type: 
  Country: None (occurrence: None)
  Receive Date: 20120120
  Receipt Date: 20120116
  Transmission Date: 20120608
  Serious: Yes (Life-Threatening, Hospitalization)
  Sender: FDA-Public Use
  Company Number: CH-PFIZER INC-2012005548

PATIENT
  Age: 78 Year
  Sex: Female
  Weight: 56 kg

DRUGS (2)
  1. PF-02341066 [Suspect]
     Indication: NON-SMALL CELL LUNG CANCER METASTATIC
  2. PF-02341066 [Suspect]
     Indication: NEUROENDOCRINE CARCINOMA METASTATIC
     Dosage: 250 MG, 2X/DAY
     Dates: start: 20111017, end: 20120107

REACTIONS (1)
  - INTERSTITIAL LUNG DISEASE [None]
